FAERS Safety Report 4546184-6 (Version None)
Quarter: 2005Q1

REPORT INFORMATION
  Report Type: 
  Country: None (occurrence: None)
  Receive Date: 20050106
  Receipt Date: 20041223
  Transmission Date: 20050727
  Serious: Yes (Life-Threatening, Hospitalization, Other)
  Sender: FDA-Public Use
  Company Number: BG-NOVOPROD-241328

PATIENT
  Age: 0 Day
  Sex: Male
  Weight: 4 kg

DRUGS (11)
  1. NOVORAPID PENFILL 3.0 ML [Suspect]
     Indication: DIABETES MELLITUS INSULIN-DEPENDENT
     Dosage: 42 IU, QD
     Route: 015
     Dates: start: 20040604
  2. PROTAPHAN PENFILL [Concomitant]
     Indication: DIABETES MELLITUS INSULIN-DEPENDENT
     Dosage: 16 IU, QD
     Route: 015
     Dates: start: 20040604
  3. CALCIUM GLUCONATE [Concomitant]
     Dosage: 12 ML, 10 %
     Route: 042
     Dates: start: 20041221, end: 20041221
  4. CALCIUM GLUCONATE [Concomitant]
     Dosage: 15 ML, 10%
     Dates: start: 20041222, end: 20041222
  5. NORMAL HUMAN PLASMA [Concomitant]
     Dosage: 10 ML, QD
     Route: 042
     Dates: start: 20041221, end: 20041221
  6. NORMAL HUMAN PLASMA [Concomitant]
     Dosage: 50 ML, QD
     Route: 042
     Dates: start: 20041222, end: 20041222
  7. VITAMIN K [Concomitant]
     Dosage: 1 MG, SINGLE
     Route: 042
     Dates: start: 20041221, end: 20041221
  8. GLUCAGEN [Concomitant]
     Dosage: .3 MG, QD
     Route: 030
     Dates: start: 20041221, end: 20041221
  9. PHENOBARBITAL TAB [Concomitant]
     Dosage: 30 MG, QD
     Route: 042
     Dates: start: 20041222, end: 20041222
  10. GLUCOSE [Concomitant]
     Dosage: 188 ML, 10%
     Route: 042
     Dates: start: 20041221, end: 20041221
  11. GLUCOSE [Concomitant]
     Dosage: 235 ML, 10%
     Route: 042
     Dates: start: 20041222, end: 20041222

REACTIONS (2)
  - DRUG EXPOSURE DURING PREGNANCY [None]
  - NEONATAL RESPIRATORY DISTRESS SYNDROME [None]
